FAERS Safety Report 7755809-3 (Version None)
Quarter: 2011Q3

REPORT INFORMATION
  Report Type: 
  Country: None (occurrence: None)
  Receive Date: 20110916
  Receipt Date: 20110913
  Transmission Date: 20111222
  Serious: Yes (Other)
  Sender: FDA-Public Use
  Company Number: US-PFIZER INC-2011123464

PATIENT
  Sex: Female

DRUGS (5)
  1. AMLODIPINE [Concomitant]
  2. SUTENT [Suspect]
     Indication: RENAL CELL CARCINOMA
     Dosage: 25 MG, DAILY ON DAYS 1-7
     Route: 048
     Dates: start: 20110516
  3. LISINOPRIL [Concomitant]
  4. SUTENT [Suspect]
     Dosage: 50 MG, 1X/DAY, FOR DAYS 22-28
     Route: 048
     Dates: start: 20110606
  5. SUTENT [Suspect]
     Dosage: 37.5 MG, 1X/DAY, ON DAYS 8-21
     Route: 048

REACTIONS (2)
  - HYPOTENSION [None]
  - PALMAR-PLANTAR ERYTHRODYSAESTHESIA SYNDROME [None]
